FAERS Safety Report 4766855-6 (Version None)
Quarter: 2005Q3

REPORT INFORMATION
  Report Type: 
  Country: None (occurrence: None)
  Receive Date: 20050909
  Receipt Date: 20050902
  Transmission Date: 20060218
  Serious: Yes (Life-Threatening, Hospitalization)
  Sender: FDA-Public Use
  Company Number: 2005-132089-NL

PATIENT
  Age: 32 Year
  Sex: Female

DRUGS (2)
  1. NUVARING [Suspect]
     Indication: CONTRACEPTION
     Dosage: DF, VAGINAL
     Route: 067
     Dates: start: 20050807, end: 20050828
  2. ANTIHYPERTENSIVE [Concomitant]

REACTIONS (2)
  - HEADACHE [None]
  - MYOCARDIAL INFARCTION [None]
